FAERS Safety Report 6443535-2 (Version None)
Quarter: 2009Q4

REPORT INFORMATION
  Report Type: 
  Country: None (occurrence: None)
  Receive Date: 20091112
  Receipt Date: 20091027
  Transmission Date: 20100525
  Serious: Yes (Hospitalization, Other)
  Sender: FDA-Public Use
  Company Number: ACO_00616_2009

PATIENT
  Sex: Female

DRUGS (12)
  1. SIRDALUD /00740702/ (SIRDALUD - TIZANADINE HYDROCHLORIDE) 2MG (NOT SPE [Suspect]
     Indication: DRUG USE FOR UNKNOWN INDICATION
     Dosage: DF
     Dates: start: 20080718, end: 20080813
  2. CO-DIOVAN (CO-DIOVAN - VALSARTAN, HYDROCHLOROTHIAZIDE) 80 MG (NOT SPEC [Suspect]
     Indication: DRUG USE FOR UNKNOWN INDICATION
     Dosage: DF
     Dates: start: 20080725, end: 20080813
  3. LAMICTAL [Suspect]
     Indication: DRUG USE FOR UNKNOWN INDICATION
     Dosage: 25 MG, QD, 50 MG, 75 MG QD, 100 MG
     Dates: start: 20080718, end: 20080727
  4. LAMICTAL [Suspect]
     Indication: DRUG USE FOR UNKNOWN INDICATION
     Dosage: 25 MG, QD, 50 MG, 75 MG QD, 100 MG
     Dates: start: 20080728, end: 20080804
  5. LAMICTAL [Suspect]
     Indication: DRUG USE FOR UNKNOWN INDICATION
     Dosage: 25 MG, QD, 50 MG, 75 MG QD, 100 MG
     Dates: start: 20080805, end: 20080810
  6. LAMICTAL [Suspect]
     Indication: DRUG USE FOR UNKNOWN INDICATION
     Dosage: 25 MG, QD, 50 MG, 75 MG QD, 100 MG
     Dates: start: 20080811
  7. LAMICTAL [Suspect]
     Indication: DRUG USE FOR UNKNOWN INDICATION
     Dosage: 25 MG, QD, 50 MG, 75 MG QD, 100 MG
     Dates: start: 20080812
  8. DIOVAN [Concomitant]
  9. IXEL [Concomitant]
  10. TRAZODONE HCL [Concomitant]
  11. DIBONDRIN [Concomitant]
  12. CONCOR [Concomitant]

REACTIONS (3)
  - DRUG ERUPTION [None]
  - ERYTHEMA [None]
  - PRURITUS [None]
